FAERS Safety Report 9426030 (Version 1)
Quarter: 2013Q3

REPORT INFORMATION
  Report Type: Spontaneous
  Country: KR (occurrence: KR)
  Receive Date: 20130730
  Receipt Date: 20130730
  Transmission Date: 20140515
  Serious: Yes (Disabling, Other)
  Sender: FDA-Public Use
  Company Number: KR-009507513-1307KOR014727

PATIENT
  Sex: Male

DRUGS (1)
  1. COSOPT [Suspect]
     Dosage: UNK
     Dates: start: 20090701, end: 2011

REACTIONS (1)
  - Blindness unilateral [Unknown]
